FAERS Safety Report 21409328 (Version 1)
Quarter: 2022Q4

REPORT INFORMATION
  Report Type: Spontaneous
  Country: SI (occurrence: SI)
  Receive Date: 20221004
  Receipt Date: 20221004
  Transmission Date: 20230112
  Serious: Yes (Other)
  Sender: FDA-Public Use
  Company Number: SI-002147023-NVSC2022SI216555

PATIENT
  Age: 72 Year
  Sex: Female

DRUGS (1)
  1. PANTOPRAZOLE [Suspect]
     Active Substance: PANTOPRAZOLE
     Indication: Chronic gastritis
     Dosage: 20 MILLIGRAM
     Route: 065

REACTIONS (4)
  - Palpitations [Unknown]
  - Choking [Unknown]
  - Dyspnoea exertional [Unknown]
  - Tachycardia [Unknown]
